FAERS Safety Report 17468446 (Version 1)
Quarter: 2020Q1

REPORT INFORMATION
  Report Type: Spontaneous
  Country: US (occurrence: US)
  Receive Date: 20200227
  Receipt Date: 20200227
  Transmission Date: 20200409
  Serious: Yes (Other)
  Sender: FDA-Public Use
  Company Number: US-PURACAP PHARMACEUTICAL LLC-2020EPC00057

PATIENT
  Age: 73 Year
  Sex: Female
  Weight: 100.68 kg

DRUGS (18)
  1. IBUPROFEN. [Suspect]
     Active Substance: IBUPROFEN
     Indication: HEADACHE
     Dosage: 400 MG, 2X/DAY
     Route: 048
  2. IBUPROFEN. [Suspect]
     Active Substance: IBUPROFEN
     Indication: FALL
  3. UNSPECIFIED INHALER FOR ASTHMA [Concomitant]
  4. UNSPECIFIED VERTIGO MEDICATION [Concomitant]
  5. ST. JOSEPH^S ASPIRIN [Concomitant]
  6. METFORMIN [Concomitant]
     Active Substance: METFORMIN HYDROCHLORIDE
  7. IBUPROFEN. [Suspect]
     Active Substance: IBUPROFEN
     Indication: ANALGESIC THERAPY
     Dosage: 600 MG, 2X/DAY
     Route: 048
     Dates: start: 201911
  8. UNSPECIFIED THYROID PILL [Concomitant]
  9. VITAMIN D [Concomitant]
     Active Substance: VITAMIN D NOS
  10. LECITHIN [Concomitant]
     Active Substance: LECITHIN
  11. CALCIUM PILLS [Concomitant]
  12. LIPITOR [Concomitant]
     Active Substance: ATORVASTATIN CALCIUM
  13. CRANBERRY PILLS [Concomitant]
  14. CBD OIL [Concomitant]
     Active Substance: CANNABIDIOL\HERBALS
  15. IBUPROFEN. [Suspect]
     Active Substance: IBUPROFEN
     Indication: PYREXIA
     Dosage: 600 MG, 2X/DAY
     Route: 048
     Dates: end: 202001
  16. UNSPECIFIED HIGH BLOOD PRESSURE MEDICATION [Concomitant]
     Active Substance: UNSPECIFIED INGREDIENT
  17. UNSPECIFIED PILL FOR NAUSEA [Concomitant]
  18. VITAMIN B ^SUPER SUPPLEMENT^ [Concomitant]

REACTIONS (12)
  - Presyncope [Recovered/Resolved]
  - Joint injury [Recovered/Resolved]
  - Product physical issue [Recovered/Resolved]
  - Bronchitis [Recovered/Resolved]
  - Drug ineffective [Recovered/Resolved]
  - Atypical pneumonia [Recovered/Resolved]
  - Fall [Recovered/Resolved]
  - Muscle spasms [Unknown]
  - Muscle injury [Recovered/Resolved]
  - Pain in extremity [Recovered/Resolved]
  - Contusion [Recovered/Resolved]
  - Weight decreased [Unknown]

NARRATIVE: CASE EVENT DATE: 201909
